FAERS Safety Report 4480987-1 (Version None)
Quarter: 2004Q4

REPORT INFORMATION
  Report Type: 
  Country: None (occurrence: None)
  Receive Date: 20041019
  Receipt Date: 20041019
  Transmission Date: 20050328
  Serious: No
  Sender: FDA-Public Use
  Company Number: None

PATIENT
  Age: 13 Year
  Sex: Male

DRUGS (2)
  1. EFFEXOR XR [Suspect]
     Indication: GENERALISED ANXIETY DISORDER
     Dosage: 1 Q AM
  2. EFFEXOR XR [Suspect]
     Indication: DEPRESSION
     Dosage: 1 Q AM

REACTIONS (3)
  - AGITATION [None]
  - HOSTILITY [None]
  - SUICIDAL IDEATION [None]
